FAERS Safety Report 18148120 (Version 1)
Quarter: 2020Q3

REPORT INFORMATION
  Report Type: Spontaneous
  Country: US (occurrence: US)
  Receive Date: 20200813
  Receipt Date: 20200813
  Transmission Date: 20201103
  Serious: Yes (Other)
  Sender: FDA-Public Use
  Company Number: US-TEVA-2020-US-1813296

PATIENT
  Sex: Female

DRUGS (2)
  1. ACTIQ [Suspect]
     Active Substance: FENTANYL CITRATE
     Indication: PRODUCT USED FOR UNKNOWN INDICATION
     Route: 065
  2. FENTORA [Suspect]
     Active Substance: FENTANYL CITRATE
     Indication: PRODUCT USED FOR UNKNOWN INDICATION
     Route: 065

REACTIONS (6)
  - Functional gastrointestinal disorder [Unknown]
  - Product use in unapproved indication [Unknown]
  - Insurance issue [Unknown]
  - Pain [Unknown]
  - Neoplasm malignant [Unknown]
  - Intercepted product prescribing error [Unknown]
